FAERS Safety Report 5653461-4 (Version None)
Quarter: 2008Q1

REPORT INFORMATION
  Report Type: 
  Country: None (occurrence: None)
  Receive Date: 20080306
  Receipt Date: 20080304
  Transmission Date: 20080703
  Serious: Yes (Disabling)
  Sender: FDA-Public Use
  Company Number: B0511201A

PATIENT
  Age: 59 Year
  Sex: Male

DRUGS (1)
  1. AVODART [Suspect]
     Dosage: 1TAB PER DAY
     Route: 048
     Dates: start: 20080101, end: 20080201

REACTIONS (2)
  - EJACULATION DISORDER [None]
  - SEMEN VOLUME DECREASED [None]
